FAERS Safety Report 15812704 (Version 1)
Quarter: 2019Q1

REPORT INFORMATION
  Report Type: Spontaneous
  Country: DE (occurrence: DE)
  Receive Date: 20190111
  Receipt Date: 20190111
  Transmission Date: 20190417
  Serious: Yes (Hospitalization, Other)
  Sender: FDA-Public Use
  Company Number: IND-DE-009507513-1901DEU000881

PATIENT
  Sex: Female

DRUGS (1)
  1. ARCOXIA [Suspect]
     Active Substance: ETORICOXIB
     Dosage: 60 MG ONCE DAILY
     Route: 048
     Dates: start: 201705, end: 201805

REACTIONS (3)
  - Colitis ischaemic [Unknown]
  - Intestinal haemorrhage [Unknown]
  - Spinal disorder [Unknown]

NARRATIVE: CASE EVENT DATE: 201805
